FAERS Safety Report 8293018-2 (Version None)
Quarter: 2012Q2

REPORT INFORMATION
  Report Type: 
  Country: None (occurrence: None)
  Receive Date: 20120417
  Receipt Date: 20120109
  Transmission Date: 20120825
  Serious: No
  Sender: FDA-Public Use
  Company Number: US-ASTRAZENECA-2009UW13852

PATIENT
  Age: 57 Year
  Sex: Female
  Weight: 73.5 kg

DRUGS (2)
  1. NEXIUM [Suspect]
     Indication: BARRETT'S OESOPHAGUS
     Route: 048
     Dates: start: 20081201
  2. NEXIUM [Suspect]
     Indication: GASTROOESOPHAGEAL REFLUX DISEASE
     Route: 048
     Dates: start: 20081201

REACTIONS (8)
  - APHAGIA [None]
  - VOMITING [None]
  - CHEST PAIN [None]
  - THROAT IRRITATION [None]
  - OESOPHAGEAL DISORDER [None]
  - PAIN [None]
  - MALAISE [None]
  - DRUG DOSE OMISSION [None]
